FAERS Safety Report 9053611 (Version 1)
Quarter: 2013Q1

REPORT INFORMATION
  Report Type: Report from Study
  Country: AU (occurrence: AU)
  Receive Date: 20130208
  Receipt Date: 20130208
  Transmission Date: 20140127
  Serious: Yes (Life-Threatening, Hospitalization, Other)
  Sender: FDA-Public Use
  Company Number: PHHY2012AU106566

PATIENT
  Age: 55 None
  Sex: Male
  Weight: 111 kg

DRUGS (13)
  1. CLOZARIL [Suspect]
     Indication: SCHIZOPHRENIA
     Dosage: 300 MG, UNK
     Dates: start: 20100326
  2. CLOZARIL [Suspect]
     Dosage: 100 MG, (ONE TAB IN MORNING AND TWO TAB IN NIGHT)
     Dates: start: 20121115
  3. SERENACE [Concomitant]
     Dosage: ONE TAB IN MORNING AND HALF TAB AT NIGHT.
     Dates: start: 20121115
  4. PANTOPRAZOLE [Concomitant]
     Dosage: 1 DF, IN MORNING
     Route: 048
     Dates: start: 20121115
  5. SALBUTAMOL [Concomitant]
     Dosage: 2 PUFF EVERY 4 HOURS
     Dates: start: 20121115
  6. SPIRIVA [Concomitant]
     Dosage: 1 DF, QD
     Dates: start: 20121115
  7. PARACETAMOL [Concomitant]
     Dosage: 2 DF, TID
     Dates: start: 20121115
  8. THIAMINE [Concomitant]
     Dosage: 1 DF, QD
     Dates: start: 20121115
  9. SERETIDE [Concomitant]
     Dosage: 2 DF, BID
     Dates: start: 20121115
  10. BENZTROPINE [Concomitant]
     Dosage: 1 DF, QD AT NIGHT
     Dates: start: 20121115
  11. ATORVASTATIN [Concomitant]
     Dosage: 1 DF, QD AT NIGHT
     Dates: start: 20121115
  12. EPILIM [Concomitant]
     Dosage: 2 DF, BID
     Dates: start: 20121115
  13. PRISTIQ [Concomitant]
     Dosage: 1 DF, IN MORNING
     Dates: start: 20121115

REACTIONS (5)
  - Lower respiratory tract infection [Recovered/Resolved]
  - Dyspnoea [Unknown]
  - Chronic obstructive pulmonary disease [Unknown]
  - Oesophagitis [Unknown]
  - Gastritis [Unknown]
